FAERS Safety Report 4810244-2 (Version None)
Quarter: 2005Q4

REPORT INFORMATION
  Report Type: 
  Country: None (occurrence: None)
  Receive Date: 20051026
  Receipt Date: 20051001
  Transmission Date: 20060501
  Serious: Yes (Hospitalization)
  Sender: FDA-Public Use
  Company Number: FR-GLAXOSMITHKLINE-B0396408A

PATIENT
  Age: 45 Year
  Sex: Male

DRUGS (1)
  1. REQUIP [Suspect]
     Indication: PARKINSON'S DISEASE
     Route: 048
     Dates: start: 20030201, end: 20050925

REACTIONS (10)
  - ABNORMAL BEHAVIOUR [None]
  - DEPRESSION [None]
  - EATING DISORDER [None]
  - HOMOSEXUALITY [None]
  - LIBIDO INCREASED [None]
  - NAUSEA [None]
  - PATHOLOGICAL GAMBLING [None]
  - SOMNOLENCE [None]
  - SUICIDE ATTEMPT [None]
  - THEFT [None]
